FAERS Safety Report 4899657-0 (Version None)
Quarter: 2006Q1

REPORT INFORMATION
  Report Type: 
  Country: None (occurrence: None)
  Receive Date: 20060202
  Receipt Date: 20060131
  Transmission Date: 20060701
  Serious: Yes (Hospitalization)
  Sender: FDA-Public Use
  Company Number: ES-MERCK-0602ESP00001

PATIENT
  Age: 74 Year
  Sex: Male

DRUGS (6)
  1. SINGULAIR [Suspect]
     Indication: EMPHYSEMA
     Route: 048
     Dates: start: 20060127, end: 20060127
  2. SINGULAIR [Suspect]
     Indication: RESPIRATORY FAILURE
     Route: 048
     Dates: start: 20060127, end: 20060127
  3. DEFLAZACORT [Concomitant]
     Indication: CHRONIC OBSTRUCTIVE PULMONARY DISEASE
     Route: 048
     Dates: start: 20060101
  4. TIOTROPIUM BROMIDE [Concomitant]
     Route: 065
  5. [THERAPY UNSPECIFIED] [Concomitant]
     Indication: CHRONIC OBSTRUCTIVE PULMONARY DISEASE
     Route: 065
  6. [THERAPY UNSPECIFIED] [Concomitant]
     Route: 065

REACTIONS (3)
  - BRONCHOSPASM [None]
  - CYANOSIS [None]
  - RESTLESSNESS [None]
